FAERS Safety Report 8206036-7 (Version None)
Quarter: 2012Q1

REPORT INFORMATION
  Report Type: 
  Country: None (occurrence: None)
  Receive Date: 20120313
  Receipt Date: 20120227
  Transmission Date: 20120608
  Serious: Yes (Disabling)
  Sender: FDA-Public Use
  Company Number: GB-WATSON-2012-03945

PATIENT
  Age: 47 Year
  Sex: Male
  Weight: 96.9 kg

DRUGS (28)
  1. ASPIRIN [Concomitant]
     Indication: PRODUCT USED FOR UNKNOWN INDICATION
     Dosage: UNK
     Dates: start: 20111110, end: 20111208
  2. PROCTOSEDYL                        /00095901/ [Concomitant]
     Indication: PRODUCT USED FOR UNKNOWN INDICATION
     Dosage: UNK
     Dates: start: 20111025, end: 20111209
  3. BENDROFLUMETHIAZIDE [Concomitant]
     Indication: PRODUCT USED FOR UNKNOWN INDICATION
     Dosage: UNK
     Dates: start: 20111110, end: 20111208
  4. ASPIRIN [Concomitant]
     Dosage: UNK
     Dates: start: 20111213, end: 20120208
  5. SIMVASTATIN [Concomitant]
     Dosage: UNK
     Dates: start: 20111213, end: 20120208
  6. BENDROFLUMETHIAZIDE [Concomitant]
     Dosage: UNK
     Dates: start: 20111213, end: 20120208
  7. ACETAMINOPHEN [Concomitant]
     Dosage: UNK
     Dates: start: 20111213, end: 20120208
  8. OTOMIZE [Concomitant]
     Indication: PRODUCT USED FOR UNKNOWN INDICATION
     Dosage: UNK
     Dates: start: 20111114, end: 20111205
  9. CINCHOCAINE [Concomitant]
     Indication: PRODUCT USED FOR UNKNOWN INDICATION
     Dosage: UNK
     Dates: start: 20111125, end: 20111205
  10. SENNA                              /00142201/ [Concomitant]
     Indication: PRODUCT USED FOR UNKNOWN INDICATION
     Dosage: UNK
     Dates: start: 20111130, end: 20111228
  11. GLYCEROL 2.6% [Concomitant]
     Indication: PRODUCT USED FOR UNKNOWN INDICATION
     Dosage: UNK
     Dates: start: 20111207, end: 20111209
  12. PROCTOSEDYL                        /00095901/ [Concomitant]
     Dosage: UNK
     Dates: start: 20111213, end: 20120208
  13. BISOPROLOL FUMARATE [Concomitant]
     Dosage: UNK
     Dates: start: 20111213, end: 20120208
  14. RAMIPRIL [Concomitant]
     Indication: PRODUCT USED FOR UNKNOWN INDICATION
     Dosage: UNK
     Dates: start: 20111110, end: 20111208
  15. SIMVASTATIN [Concomitant]
     Indication: PRODUCT USED FOR UNKNOWN INDICATION
     Dosage: UNK
     Dates: start: 20111110, end: 20111208
  16. LAXIDO [Concomitant]
     Indication: PRODUCT USED FOR UNKNOWN INDICATION
     Dosage: UNK
     Dates: start: 20111110, end: 20111208
  17. AMLODIPINE [Suspect]
     Indication: PRODUCT USED FOR UNKNOWN INDICATION
     Dosage: 5 (STRENGTH UNK), DAILY
     Dates: start: 20120117, end: 20120207
  18. NITROGLYCERIN [Concomitant]
     Indication: PRODUCT USED FOR UNKNOWN INDICATION
     Dosage: UNK
     Dates: start: 20111025, end: 20111209
  19. NITROGLYCERIN [Concomitant]
     Dosage: UNK
     Dates: start: 20111213, end: 20120208
  20. VALPROATE SODIUM [Concomitant]
     Dosage: UNK
     Dates: start: 20111213, end: 20120208
  21. RAMIPRIL [Concomitant]
     Dosage: UNK
     Dates: start: 20111213, end: 20120208
  22. ACETAMINOPHEN [Concomitant]
     Indication: PRODUCT USED FOR UNKNOWN INDICATION
     Dosage: UNK
     Dates: start: 20111110, end: 20111208
  23. OMEPRAZOLE [Concomitant]
     Indication: PRODUCT USED FOR UNKNOWN INDICATION
     Dosage: UNK
     Dates: start: 20111110, end: 20111208
  24. BETAMETHASONE VALERATE [Concomitant]
     Indication: PRODUCT USED FOR UNKNOWN INDICATION
     Dosage: UNK
     Dates: start: 20120117, end: 20120214
  25. BISOPROLOL FUMARATE [Concomitant]
     Indication: PRODUCT USED FOR UNKNOWN INDICATION
     Dosage: UNK
     Dates: start: 20111110, end: 20111208
  26. OMEPRAZOLE [Concomitant]
     Dosage: UNK
     Dates: start: 20111213, end: 20120208
  27. VALPROATE SODIUM [Concomitant]
     Indication: PRODUCT USED FOR UNKNOWN INDICATION
     Dosage: UNK
     Dates: start: 20111110, end: 20111208
  28. LAXIDO [Concomitant]
     Dosage: UNK
     Dates: start: 20111213, end: 20120208

REACTIONS (1)
  - EPILEPSY [None]
